FAERS Safety Report 24238853 (Version 1)
Quarter: 2024Q3

REPORT INFORMATION
  Report Type: Spontaneous
  Country: JP (occurrence: None)
  Receive Date: 20240822
  Receipt Date: 20240822
  Transmission Date: 20241017
  Serious: Yes (Death, Life-Threatening)
  Sender: ASTRAZENECA
  Company Number: 2024A190167

PATIENT
  Age: 90 Year
  Sex: Male

DRUGS (3)
  1. ONDEXXYA [Suspect]
     Active Substance: ANDEXANET ALFA
     Indication: Haemorrhage
     Dosage: 400 MG IV AT A RATE OF 30 MG/MIN FOLLOWED BY 480 MG IV AT A RATE OF 4 MG/MIN880.0MG UNKNOWN
     Route: 042
     Dates: start: 202407, end: 202407
  2. UNSPECIFIED INGREDIENT [Concomitant]
     Active Substance: UNSPECIFIED INGREDIENT
     Dosage: DOSE UNKNOWN
     Route: 048
  3. HEPARIN SODIUM [Concomitant]
     Active Substance: HEPARIN SODIUM
     Dosage: DOSE UNKNOWN

REACTIONS (2)
  - Cardiac failure [Fatal]
  - Heparin resistance [Fatal]

NARRATIVE: CASE EVENT DATE: 20240701
